FAERS Safety Report 6610994-1 (Version None)
Quarter: 2010Q1

REPORT INFORMATION
  Report Type: 
  Country: None (occurrence: None)
  Receive Date: 20100222
  Receipt Date: 20100209
  Transmission Date: 20100710
  Serious: Yes (Hospitalization, Other)
  Sender: FDA-Public Use
  Company Number: A-CH2009-24971

PATIENT
  Age: 52 Year
  Sex: Male
  Weight: 76 kg

DRUGS (3)
  1. TRACLEER [Suspect]
     Indication: SKIN ULCER
     Dosage: 62.5 MG, BID, ORAL 125 MG, BID, ORAL 62.5 MG, BID, ORAL
     Route: 048
     Dates: end: 20091201
  2. TRACLEER [Suspect]
     Indication: SKIN ULCER
     Dosage: 62.5 MG, BID, ORAL 125 MG, BID, ORAL 62.5 MG, BID, ORAL
     Route: 048
     Dates: start: 20090316
  3. PYOSTACINE(PRISTINAMYCIN) [Suspect]
     Indication: ERYSIPELAS
     Dosage: ORAL
     Route: 048
     Dates: start: 20090401, end: 20090411

REACTIONS (8)
  - BLISTER [None]
  - CONDITION AGGRAVATED [None]
  - CUTANEOUS LUPUS ERYTHEMATOSUS [None]
  - HAEMATOLOGY TEST ABNORMAL [None]
  - HEPATITIS [None]
  - LEUKOCYTOCLASTIC VASCULITIS [None]
  - RASH MACULO-PAPULAR [None]
  - THROMBOTIC MICROANGIOPATHY [None]
